FAERS Safety Report 8851118 (Version 2)
Quarter: 2012Q4

REPORT INFORMATION
  Report Type: 
  Country: US (occurrence: US)
  Receive Date: 20121019
  Receipt Date: 20121026
  Transmission Date: 20130627
  Serious: No
  Sender: FDA-Public Use
  Company Number: US-PFIZER INC-2012260310

PATIENT
  Age: 56 Year
  Sex: Female
  Weight: 54.42 kg

DRUGS (2)
  1. LIPITOR [Suspect]
     Indication: BLOOD CHOLESTEROL ABNORMAL
     Dosage: UNK
  2. LIPITOR [Suspect]
     Dosage: 20 mg, daily

REACTIONS (1)
  - Alopecia [Unknown]
